FAERS Safety Report 4431259-2 (Version None)
Quarter: 2004Q3

REPORT INFORMATION
  Report Type: 
  Country: None (occurrence: None)
  Receive Date: 20040818
  Receipt Date: 20040802
  Transmission Date: 20050211
  Serious: Yes (Other)
  Sender: FDA-Public Use
  Company Number: B0341857A

PATIENT
  Sex: Female

DRUGS (3)
  1. RETROVIR [Suspect]
  2. RITONAVIR (FORMULATION UNKNOWN) (RITONAVIR) [Suspect]
  3. SAQUINAVIR (FORMULATION UNKNOWN) (SAQUINAVIR) [Suspect]

REACTIONS (6)
  - ANAEMIA [None]
  - BLOOD ALKALINE PHOSPHATASE INCREASED [None]
  - DIARRHOEA [None]
  - DRUG EXPOSURE DURING PREGNANCY [None]
  - NAUSEA [None]
  - PREMATURE BABY [None]
